FAERS Safety Report 6992304-3 (Version None)
Quarter: 2010Q3

REPORT INFORMATION
  Report Type: 
  Country: None (occurrence: None)
  Receive Date: 20100917
  Receipt Date: 20100908
  Transmission Date: 20110219
  Serious: Yes (Other)
  Sender: FDA-Public Use
  Company Number: JP-ASTRAZENECA-2010SE43021

PATIENT
  Age: 74 Year
  Sex: Female

DRUGS (2)
  1. IRESSA [Suspect]
     Indication: NON-SMALL CELL LUNG CANCER
     Route: 048
     Dates: start: 20080912, end: 20081023
  2. IRESSA [Suspect]
     Dosage: POST-TREATMENT
     Route: 048
     Dates: start: 20081128

REACTIONS (1)
  - HEPATIC FUNCTION ABNORMAL [None]
